FAERS Safety Report 7915848-6 (Version None)
Quarter: 2011Q4

REPORT INFORMATION
  Report Type: 
  Country: None (occurrence: None)
  Receive Date: 20111115
  Receipt Date: 20111031
  Transmission Date: 20120403
  Serious: Yes (Other)
  Sender: FDA-Public Use
  Company Number: IN-WATSON-2011-18467

PATIENT
  Age: 24 Year
  Sex: Male

DRUGS (1)
  1. PREDNISOLONE [Suspect]
     Indication: VIITH NERVE PARALYSIS
     Dosage: 60 MG, DAILY X 5 DAYS
     Route: 048

REACTIONS (1)
  - CHORIORETINOPATHY [None]
